FAERS Safety Report 21063463 (Version 10)
Quarter: 2023Q4

REPORT INFORMATION
  Report Type: Report from Study
  Country: PA (occurrence: PA)
  Receive Date: 20220711
  Receipt Date: 20231208
  Transmission Date: 20240109
  Serious: Yes (Other)
  Sender: FDA-Public Use
  Company Number: PA-NOVARTISPH-NVSC2022PA155336

PATIENT
  Age: 63 Year
  Sex: Female

DRUGS (6)
  1. KISQALI [Suspect]
     Active Substance: RIBOCICLIB
     Indication: Breast cancer metastatic
     Dosage: 400 MG, QD (AT NOON)
     Route: 048
     Dates: start: 20220704
  2. KISQALI [Suspect]
     Active Substance: RIBOCICLIB
     Dosage: 3 DOSAGE FORM (600MG)
     Route: 048
     Dates: start: 20231023, end: 20231120
  3. ZOMETA [Suspect]
     Active Substance: ZOLEDRONIC ACID
     Indication: Product used for unknown indication
     Dosage: UNK
     Route: 065
  4. FEMARA [Suspect]
     Active Substance: LETROZOLE
     Indication: Breast cancer metastatic
     Dosage: 400 MG (AT NOON)
     Route: 048
     Dates: start: 20220704
  5. ANASTROZOLE [Suspect]
     Active Substance: ANASTROZOLE
     Indication: Breast cancer metastatic
     Dosage: UNK (AT NIGHT)
     Route: 065
     Dates: start: 20220704
  6. FULVESTRANT [Concomitant]
     Active Substance: FULVESTRANT
     Indication: Product used for unknown indication
     Dosage: UNK
     Route: 065

REACTIONS (25)
  - Bradycardia [Recovered/Resolved]
  - Metastases to spine [Unknown]
  - Metastases to bone [Unknown]
  - Metastases to pelvis [Unknown]
  - Breast cancer [Unknown]
  - Lymphoma [Unknown]
  - Bone pain [Recovered/Resolved]
  - Diarrhoea [Unknown]
  - Abdominal discomfort [Not Recovered/Not Resolved]
  - Neoplasm [Recovering/Resolving]
  - Spinal pain [Recovered/Resolved]
  - Breast pain [Unknown]
  - Tumour marker increased [Unknown]
  - Haemoglobin increased [Unknown]
  - Musculoskeletal chest pain [Recovering/Resolving]
  - Weight decreased [Unknown]
  - Pain in extremity [Unknown]
  - Sarcopenia [Unknown]
  - Abdominal pain upper [Unknown]
  - Back pain [Unknown]
  - Malaise [Unknown]
  - Weight decreased [Unknown]
  - Breast atrophy [Not Recovered/Not Resolved]
  - Product prescribing error [Unknown]
  - Drug ineffective [Unknown]

NARRATIVE: CASE EVENT DATE: 20221219
